FAERS Safety Report 5834103-1 (Version None)
Quarter: 2008Q3

REPORT INFORMATION
  Report Type: 
  Country: None (occurrence: None)
  Receive Date: 20080731
  Receipt Date: 20080716
  Transmission Date: 20090109
  Serious: Yes (Death)
  Sender: FDA-Public Use
  Company Number: 2008AL008357

PATIENT
  Age: 82 Year
  Sex: Male
  Weight: 54.4316 kg

DRUGS (1)
  1. DIGOXIN [Suspect]
     Indication: CARDIAC DISORDER
     Dosage: 0.25MG DAILY PO
     Route: 048
     Dates: start: 20071101, end: 20080228

REACTIONS (3)
  - ASTHENIA [None]
  - DIARRHOEA [None]
  - NAUSEA [None]
